FAERS Safety Report 5455834-1 (Version None)
Quarter: 2007Q3

REPORT INFORMATION
  Report Type: 
  Country: None (occurrence: None)
  Receive Date: 20070918
  Receipt Date: 20070330
  Transmission Date: 20080115
  Serious: Yes (Other)
  Sender: FDA-Public Use
  Company Number: US-ASTRAZENECA-2006UW22824

PATIENT
  Age: 582 Month
  Sex: Female
  Weight: 86.4 kg

DRUGS (1)
  1. SEROQUEL [Suspect]
     Indication: DEPRESSION
     Route: 048

REACTIONS (2)
  - SUICIDAL BEHAVIOUR [None]
  - TYPE 2 DIABETES MELLITUS [None]
